FAERS Safety Report 6134938-4 (Version None)
Quarter: 2009Q1

REPORT INFORMATION
  Report Type: 
  Country: None (occurrence: None)
  Receive Date: 20090327
  Receipt Date: 20090317
  Transmission Date: 20090719
  Serious: Yes (Other)
  Sender: FDA-Public Use
  Company Number: IN-AMGEN-UK335775

PATIENT
  Sex: Male

DRUGS (14)
  1. PANITUMUMAB [Suspect]
     Indication: SQUAMOUS CELL CARCINOMA
     Route: 042
     Dates: start: 20081218, end: 20090131
  2. CISPLATIN [Suspect]
     Dates: start: 20081218, end: 20081218
  3. CISPLATIN [Suspect]
     Dates: start: 20090108, end: 20090108
  4. CISPLATIN [Suspect]
     Dates: start: 20090131, end: 20090131
  5. FLUOROURACIL [Concomitant]
     Dates: start: 20081218, end: 20081218
  6. FLUOROURACIL [Concomitant]
     Dates: start: 20090108, end: 20090108
  7. FLUOROURACIL [Concomitant]
     Dates: start: 20090131, end: 20090131
  8. ONDANSETRON [Concomitant]
     Route: 042
     Dates: start: 20090131
  9. REGLAN [Concomitant]
     Dates: start: 20090210
  10. APREPITANT [Concomitant]
     Route: 048
     Dates: start: 20090131
  11. ATIVAN [Concomitant]
     Route: 048
     Dates: start: 20090131
  12. HEPARIN [Concomitant]
     Dates: start: 20090203, end: 20090214
  13. BETNOVATE [Concomitant]
     Dates: start: 20090204, end: 20090214
  14. METOCLOPRAMIDE [Concomitant]
     Dates: start: 20090208, end: 20090209

REACTIONS (3)
  - ICHTHYOSIS ACQUIRED [None]
  - PSORIASIS [None]
  - SUBCUTANEOUS ABSCESS [None]
